FAERS Safety Report 7321824-7 (Version None)
Quarter: 2011Q1

REPORT INFORMATION
  Report Type: 
  Country: None (occurrence: None)
  Receive Date: 20110228
  Receipt Date: 20110215
  Transmission Date: 20110831
  Serious: Yes (Other)
  Sender: FDA-Public Use
  Company Number: PHHY2011GB12178

PATIENT
  Age: 6 Year
  Sex: Male
  Weight: 18.2 kg

DRUGS (14)
  1. CALCIUM CARBONATE [Concomitant]
  2. ALFACALCIDOL [Concomitant]
  3. AMLODIPINE [Concomitant]
  4. RANITIDINE [Concomitant]
  5. SEPTRIN [Concomitant]
  6. TACROLIMUS [Interacting]
  7. ASPIRIN [Concomitant]
  8. AZATHIOPRINE [Concomitant]
  9. PREDNISOLONE [Concomitant]
  10. NEORECORMON [Concomitant]
  11. SODIUM BICARBONATE [Concomitant]
  12. SYTRON [Concomitant]
  13. PIPERACILLIN AND TAZOBACTAM [Suspect]
     Indication: FEBRILE NEUTROPENIA
     Dosage: 1.5 G, UNK
     Route: 042
     Dates: start: 20110119, end: 20110121
  14. TRIMETHOPRIM [Concomitant]

REACTIONS (3)
  - IMMUNOSUPPRESSANT DRUG LEVEL INCREASED [None]
  - DRUG INTERACTION [None]
  - NEPHROPATHY TOXIC [None]
